FAERS Safety Report 9604455 (Version 4)
Quarter: 2015Q4

REPORT INFORMATION
  Report Type: Report from Study
  Country: BR (occurrence: BR)
  Receive Date: 20131008
  Receipt Date: 20151002
  Transmission Date: 20160305
  Serious: Yes (Hospitalization, Disabling, Other)
  Sender: FDA-Public Use
  Company Number: BR-ABBVIE-13P-020-1116444-00

PATIENT
  Sex: Female
  Weight: 80 kg

DRUGS (2)
  1. UNKNOWN MEDICATION(S) [Concomitant]
     Indication: PRODUCT USED FOR UNKNOWN INDICATION
  2. HUMIRA [Suspect]
     Active Substance: ADALIMUMAB
     Indication: RHEUMATOID ARTHRITIS
     Route: 058
     Dates: start: 20120101, end: 20130312

REACTIONS (11)
  - Loss of consciousness [Unknown]
  - Abasia [Not Recovered/Not Resolved]
  - Cerebrovascular accident [Unknown]
  - Bedridden [Not Recovered/Not Resolved]
  - Brain neoplasm [Recovered/Resolved]
  - Balance disorder [Not Recovered/Not Resolved]
  - Hemiplegia [Not Recovered/Not Resolved]
  - Paralysis [Unknown]
  - Infection [Unknown]
  - Urinary tract infection [Recovered/Resolved]
  - Pyrexia [Unknown]

NARRATIVE: CASE EVENT DATE: 2013
